FAERS Safety Report 10267960 (Version 1)
Quarter: 2014Q2

REPORT INFORMATION
  Report Type: Spontaneous
  Country: US (occurrence: US)
  Receive Date: 20140630
  Receipt Date: 20140630
  Transmission Date: 20141212
  Serious: Yes (Hospitalization, Other)
  Sender: FDA-Public Use
  Company Number: US-TEVA-490696USA

PATIENT
  Age: 69 Year
  Sex: Male

DRUGS (4)
  1. MIRTAZAPINE [Suspect]
     Indication: INSOMNIA
     Route: 065
  2. PROPAFENONE [Interacting]
     Indication: ATRIAL FIBRILLATION
     Route: 065
  3. ASPIRIN [Concomitant]
     Dosage: 81MG
     Route: 065
  4. MULTIVITAMIN [Concomitant]
     Route: 065

REACTIONS (8)
  - Convulsion [Recovered/Resolved]
  - Sinus bradycardia [Recovered/Resolved]
  - Hypotension [Recovered/Resolved]
  - Drug interaction [Recovered/Resolved]
  - Bundle branch block right [Recovered/Resolved]
  - Electrocardiogram QRS complex prolonged [Recovered/Resolved]
  - Electrocardiogram QT prolonged [Recovered/Resolved]
  - Toxicity to various agents [Recovered/Resolved]
